FAERS Safety Report 4521287-0 (Version None)
Quarter: 2004Q4

REPORT INFORMATION
  Report Type: 
  Country: None (occurrence: None)
  Receive Date: 20041208
  Receipt Date: 20041129
  Transmission Date: 20050328
  Serious: Yes (Death)
  Sender: FDA-Public Use
  Company Number: SE-GLAXOSMITHKLINE-B0359142A

PATIENT
  Age: 2 Year
  Sex: Male

DRUGS (3)
  1. EPIVIR [Suspect]
     Indication: DRUG USE FOR UNKNOWN INDICATION
     Dosage: 1ML PER DAY
     Route: 048
     Dates: start: 20021210, end: 20030221
  2. RETROVIR [Suspect]
     Indication: DRUG USE FOR UNKNOWN INDICATION
     Dosage: 2ML PER DAY
     Route: 048
     Dates: start: 20021210, end: 20030221
  3. KALETRA [Suspect]
     Indication: DRUG USE FOR UNKNOWN INDICATION
     Dosage: 1ML PER DAY
     Route: 048
     Dates: start: 20021210, end: 20030221

REACTIONS (2)
  - ADVERSE DRUG REACTION [None]
  - SUDDEN DEATH [None]
